FAERS Safety Report 6919786-7 (Version None)
Quarter: 2010Q3

REPORT INFORMATION
  Report Type: 
  Country: None (occurrence: None)
  Receive Date: 20100810
  Receipt Date: 20100810
  Transmission Date: 20110219
  Serious: Yes (Hospitalization)
  Sender: FDA-Public Use
  Company Number: None

PATIENT
  Age: 66 Year
  Sex: Female
  Weight: 72.1219 kg

DRUGS (2)
  1. BENDAMUSTINE [Suspect]
     Indication: BREAST CANCER METASTATIC
     Dosage: DAYS 1+2, Q21 DAYS IV
     Route: 042
     Dates: start: 20100707, end: 20100708
  2. TARCEVA [Suspect]
     Indication: BREAST CANCER METASTATIC
     Dosage: DAYS 5-21, Q21 DAYS PO
     Route: 048
     Dates: start: 20100711, end: 20100727

REACTIONS (16)
  - ASTHENIA [None]
  - DECREASED APPETITE [None]
  - DEHYDRATION [None]
  - DIARRHOEA [None]
  - DYSPNOEA [None]
  - FATIGUE [None]
  - HEADACHE [None]
  - HYPOKALAEMIA [None]
  - HYPOTENSION [None]
  - LYMPHOPENIA [None]
  - MUCOSAL INFLAMMATION [None]
  - NAUSEA [None]
  - NO THERAPEUTIC RESPONSE [None]
  - OEDEMA PERIPHERAL [None]
  - THROMBOCYTOPENIA [None]
  - WEIGHT DECREASED [None]
